FAERS Safety Report 8105008-0 (Version None)
Quarter: 2012Q1

REPORT INFORMATION
  Report Type: 
  Country: None (occurrence: None)
  Receive Date: 20120201
  Receipt Date: 20120123
  Transmission Date: 20120608
  Serious: Yes (Hospitalization)
  Sender: FDA-Public Use
  Company Number: FR-GLAXOSMITHKLINE-B0776894A

PATIENT
  Sex: Male

DRUGS (10)
  1. AVODART [Suspect]
     Indication: BENIGN PROSTATIC HYPERPLASIA
     Dosage: .5MG PER DAY
     Route: 048
     Dates: start: 20080101, end: 20110802
  2. PLAVIX [Concomitant]
     Dosage: 75MG PER DAY
  3. FORLAX [Concomitant]
  4. ALFUZOSIN HCL [Concomitant]
  5. ALUMINUM HYDROXIDE AND MAGNESIUM TRISILICATE [Concomitant]
  6. NITROGLYCERIN [Concomitant]
     Route: 062
  7. ALDALIX [Concomitant]
  8. DILTIAZEM HCL [Concomitant]
     Dosage: 200MG TWICE PER DAY
  9. PRAVASTATIN [Suspect]
     Indication: DYSLIPIDAEMIA
     Route: 048
     Dates: start: 20080101, end: 20110802
  10. ENALAPRIL MALEATE [Concomitant]
     Dosage: 20MG PER DAY

REACTIONS (4)
  - CYTOLYTIC HEPATITIS [None]
  - CHOLESTASIS [None]
  - DIARRHOEA [None]
  - EOSINOPHILIA [None]
